FAERS Safety Report 12935334 (Version 1)
Quarter: 2016Q4

REPORT INFORMATION
  Report Type: Spontaneous
  Country: US (occurrence: US)
  Receive Date: 20161114
  Receipt Date: 20161114
  Transmission Date: 20170207
  Serious: No
  Sender: FDA-Public Use
  Company Number: US-JAZZ-2016-US-018614

PATIENT
  Sex: Female

DRUGS (13)
  1. VITAMIN D                          /00107901/ [Concomitant]
     Active Substance: ERGOCALCIFEROL
  2. XYREM [Suspect]
     Active Substance: SODIUM OXYBATE
     Dosage: 4.5 G, BID
     Route: 048
     Dates: start: 201609
  3. HYDROCODONE BITARTRATE AND ACETAMINOPHEN [Concomitant]
     Active Substance: ACETAMINOPHEN\HYDROCODONE BITARTRATE
  4. ADDERALL [Concomitant]
     Active Substance: AMPHETAMINE ASPARTATE\AMPHETAMINE SULFATE\DEXTROAMPHETAMINE SACCHARATE\DEXTROAMPHETAMINE SULFATE
  5. PROMETHAZINE [Concomitant]
     Active Substance: PROMETHAZINE\PROMETHAZINE HYDROCHLORIDE
  6. BOTOX [Concomitant]
     Active Substance: ONABOTULINUMTOXINA
  7. ZOFRAN [Concomitant]
     Active Substance: ONDANSETRON HYDROCHLORIDE
  8. DEXTROAMPHETAMINE                  /00016601/ [Concomitant]
     Active Substance: DEXTROAMPHETAMINE
  9. MAXALT [Concomitant]
     Active Substance: RIZATRIPTAN BENZOATE
  10. XYREM [Suspect]
     Active Substance: SODIUM OXYBATE
     Dosage: DOSE ADJUSTMENTS
     Route: 048
     Dates: start: 201608, end: 201609
  11. XYREM [Suspect]
     Active Substance: SODIUM OXYBATE
     Indication: NARCOLEPSY
     Dosage: 2.25 G, BID
     Route: 048
     Dates: start: 201608, end: 201608
  12. PROVIGIL [Concomitant]
     Active Substance: MODAFINIL
  13. PROPRANOLOL [Concomitant]
     Active Substance: PROPRANOLOL\PROPRANOLOL HYDROCHLORIDE

REACTIONS (1)
  - Hernia [Not Recovered/Not Resolved]

NARRATIVE: CASE EVENT DATE: 2016
